FAERS Safety Report 26104280 (Version 2)
Quarter: 2025Q4

REPORT INFORMATION
  Report Type: Spontaneous
  Country: JP (occurrence: JP)
  Receive Date: 20251130
  Receipt Date: 20251210
  Transmission Date: 20260118
  Serious: Yes (Other)
  Sender: ASTELLAS
  Company Number: JP-ASTELLAS-2025-AER-062127

PATIENT
  Age: 76 Year
  Sex: Female

DRUGS (3)
  1. VYLOY [Suspect]
     Active Substance: ZOLBETUXIMAB-CLZB
     Indication: Product used for unknown indication
     Route: 065
     Dates: start: 20251107
  2. FUROSEMIDE 10mg [Concomitant]
     Indication: Oedema peripheral
     Route: 065
  3. PRIMPERAN [Concomitant]
     Active Substance: METOCLOPRAMIDE HYDROCHLORIDE
     Indication: Nausea
     Route: 065
     Dates: start: 20251107

REACTIONS (4)
  - Deep vein thrombosis [Not Recovered/Not Resolved]
  - Nausea [Recovering/Resolving]
  - Oedema peripheral [Recovered/Resolved]
  - Hypoalbuminaemia [Recovered/Resolved]

NARRATIVE: CASE EVENT DATE: 20251107
